FAERS Safety Report 23889551 (Version 1)
Quarter: 2024Q2

REPORT INFORMATION
  Report Type: Spontaneous
  Country: US (occurrence: None)
  Receive Date: 20240523
  Receipt Date: 20240523
  Transmission Date: 20240715
  Serious: No
  Sender: FDA-Public Use
  Company Number: None

PATIENT
  Age: 21 Year
  Sex: Female

DRUGS (1)
  1. ICATIBANT ACETATE [Suspect]
     Active Substance: ICATIBANT ACETATE
     Dosage: FREQUENCY : AS NEEDED;?
     Route: 058

REACTIONS (3)
  - Urticaria [None]
  - Pain of skin [None]
  - Treatment failure [None]
